FAERS Safety Report 5235538-0 (Version None)
Quarter: 2007Q1

REPORT INFORMATION
  Report Type: 
  Country: None (occurrence: None)
  Receive Date: 20061208
  Receipt Date: 20060629
  Transmission Date: 20070707
  Serious: Yes (Other)
  Sender: FDA-Public Use
  Company Number: 2006UW13676

PATIENT
  Age: 66 Year
  Sex: Female
  Weight: 54.431 kg

DRUGS (3)
  1. CRESTOR [Suspect]
     Indication: BLOOD CHOLESTEROL INCREASED
     Dosage: 10 MG PO
     Route: 048
     Dates: start: 20060501
  2. CALAN [Concomitant]
  3. ASPIRIN [Concomitant]

REACTIONS (3)
  - EAR CONGESTION [None]
  - EAR DISCOMFORT [None]
  - HEARING IMPAIRED [None]
